FAERS Safety Report 11499849 (Version 1)
Quarter: 2015Q3

REPORT INFORMATION
  Report Type: Spontaneous
  Country: US (occurrence: US)
  Receive Date: 20150914
  Receipt Date: 20150914
  Transmission Date: 20151125
  Serious: No
  Sender: FDA-Public Use
  Company Number: US-TEVA-568852USA

PATIENT
  Sex: Female
  Weight: 91 kg

DRUGS (8)
  1. GLIBENCLAMIDE [Suspect]
     Active Substance: GLYBURIDE
     Indication: PRODUCT USED FOR UNKNOWN INDICATION
     Route: 065
  2. LOSARTAN. [Concomitant]
     Active Substance: LOSARTAN
     Indication: BLOOD PRESSURE MEASUREMENT
     Dosage: 25 MILLIGRAM DAILY;
     Route: 048
  3. ALEVE [Concomitant]
     Active Substance: NAPROXEN SODIUM
  4. METFORMIN [Suspect]
     Active Substance: METFORMIN HYDROCHLORIDE
     Indication: PRODUCT USED FOR UNKNOWN INDICATION
     Route: 065
  5. THERMACARE [Concomitant]
  6. MOTRIN [Concomitant]
     Active Substance: IBUPROFEN
     Indication: PAIN
     Dosage: 600 OR 800 MG NOT EVERY DAY
     Route: 048
  7. TYLENOL [Concomitant]
     Active Substance: ACETAMINOPHEN
     Indication: PAIN
     Dosage: 500 MILLIGRAM DAILY; 2
     Route: 048
  8. LEVEMIR [Concomitant]
     Active Substance: INSULIN DETEMIR
     Indication: DIABETES MELLITUS
     Route: 065
     Dates: start: 2014

REACTIONS (4)
  - Muscle spasms [Unknown]
  - Pain [Unknown]
  - Dry skin [Unknown]
  - Cough [Unknown]
